FAERS Safety Report 4634392-5 (Version None)
Quarter: 2005Q2

REPORT INFORMATION
  Report Type: 
  Country: None (occurrence: None)
  Receive Date: 20050408
  Receipt Date: 20050324
  Transmission Date: 20051028
  Serious: Yes (Other)
  Sender: FDA-Public Use
  Company Number: 2005-DE-01212GD

PATIENT
  Age: 9 Month

DRUGS (4)
  1. NEVIRAPINE [Suspect]
     Indication: HIV INFECTION
  2. LAMIVUDINE [Suspect]
     Indication: HIV INFECTION
  3. ZIDOVUDINE [Suspect]
     Indication: HIV INFECTION
  4. TRIMETHOPRIM-SULFAMETHOXAZOLE /ITA/)(INFECTRIN) [Concomitant]

REACTIONS (3)
  - HEPATITIS [None]
  - PNEUMONIA [None]
  - RENAL FAILURE ACUTE [None]
